FAERS Safety Report 4360070-6 (Version None)
Quarter: 2004Q2

REPORT INFORMATION
  Report Type: 
  Country: None (occurrence: None)
  Receive Date: 20040514
  Receipt Date: 20040505
  Transmission Date: 20050107
  Serious: Yes (Other)
  Sender: FDA-Public Use
  Company Number: 2004-05-0209

PATIENT
  Age: 59 Year
  Sex: Female

DRUGS (3)
  1. LORATADINE 10MG / PSEUDOEPHEDRINE SULFATE 240MG [Suspect]
     Indication: HYPERSENSITIVITY
     Dosage: 1 TAB QD ORAL
     Route: 048
  2. BETA-BLOCKER (NOS) [Concomitant]
  3. ANTIHYPERTENSIVE AGENT (NOS) [Concomitant]

REACTIONS (4)
  - ASTHENIA [None]
  - FEELING ABNORMAL [None]
  - GASTRIC HAEMORRHAGE [None]
  - HEART RATE INCREASED [None]
